FAERS Safety Report 6516901-4 (Version None)
Quarter: 2009Q4

REPORT INFORMATION
  Report Type: 
  Country: None (occurrence: None)
  Receive Date: 20091223
  Receipt Date: 20091216
  Transmission Date: 20100525
  Serious: Yes (Hospitalization)
  Sender: FDA-Public Use
  Company Number: US-ABBOTT-09P-163-0614713-00

PATIENT
  Sex: Female
  Weight: 68.1 kg

DRUGS (9)
  1. HUMIRA [Suspect]
     Indication: PSORIATIC ARTHROPATHY
     Dates: start: 20090501, end: 20090901
  2. HUMIRA [Suspect]
     Indication: PSORIASIS
     Dates: start: 20090901
  3. HUMIRA [Suspect]
     Dates: end: 20090501
  4. LANTUS [Concomitant]
     Indication: DIABETES MELLITUS
  5. CARDIZEM [Concomitant]
     Indication: MYOCARDIAL INFARCTION
  6. CRESTOR [Concomitant]
     Indication: BLOOD CHOLESTEROL INCREASED
  7. NOVALOG INSULIN [Concomitant]
     Indication: DIABETES MELLITUS
  8. LISINOPRIL [Concomitant]
     Indication: DRUG USE FOR UNKNOWN INDICATION
  9. NITROLINGUAL [Concomitant]
     Indication: CHEST PAIN

REACTIONS (7)
  - ABASIA [None]
  - ARTERIAL OCCLUSIVE DISEASE [None]
  - IMPAIRED HEALING [None]
  - MUSCLE SPASMS [None]
  - SCAR [None]
  - SKIN GRAFT [None]
  - STENT PLACEMENT [None]
